FAERS Safety Report 15566104 (Version 1)
Quarter: 2018Q4

REPORT INFORMATION
  Report Type: Spontaneous
  Country: US (occurrence: US)
  Receive Date: 20181025
  Receipt Date: 20181025
  Transmission Date: 20190205
  Serious: No
  Sender: FDA-Public Use
  Company Number: None

PATIENT

DRUGS (1)
  1. CBD OIL/CANNABINOID [Suspect]
     Active Substance: CANNABIDIOL\HERBALS
     Dates: start: 201807, end: 201807

REACTIONS (5)
  - Back pain [None]
  - Dizziness [None]
  - Abdominal discomfort [None]
  - Product formulation issue [None]
  - Nausea [None]

NARRATIVE: CASE EVENT DATE: 201807
